FAERS Safety Report 5192960-9 (Version None)
Quarter: 2006Q4

REPORT INFORMATION
  Report Type: 
  Country: None (occurrence: None)
  Receive Date: 20061228
  Receipt Date: 20060322
  Transmission Date: 20070319
  Serious: No
  Sender: FDA-Public Use
  Company Number: US-GLAXOSMITHKLINE-A0598594A

PATIENT
  Age: 59 Year
  Sex: Male

DRUGS (3)
  1. FLONASE [Suspect]
     Dosage: 1PUFF PER DAY
     Route: 045
  2. DOXAZOSIN MESYLATE [Concomitant]
  3. DIOVAN [Concomitant]

REACTIONS (2)
  - EPISTAXIS [None]
  - NASAL DISCOMFORT [None]
